FAERS Safety Report 8784481 (Version 1)
Quarter: 2012Q4

REPORT INFORMATION
  Report Type: 
  Country: FR (occurrence: FR)
  Receive Date: 20120913
  Receipt Date: 20120913
  Transmission Date: 20130627
  Serious: Yes (Hospitalization)
  Sender: FDA-Public Use
  Company Number: FR-PFIZER INC-2012218315

PATIENT
  Age: 39 Year
  Sex: Female

DRUGS (1)
  1. AROMASINE [Suspect]
     Dosage: UNK
     Route: 048
     Dates: start: 201204, end: 20120629

REACTIONS (4)
  - Oedema peripheral [Recovered/Resolved]
  - Dyspnoea [Recovered/Resolved]
  - Face oedema [Recovered/Resolved]
  - Pleural effusion [Recovered/Resolved]
